FAERS Safety Report 13931897 (Version 2)
Quarter: 2017Q4

REPORT INFORMATION
  Report Type: Other
  Country: US (occurrence: US)
  Receive Date: 20170904
  Receipt Date: 20171017
  Transmission Date: 20180320
  Serious: Yes (Life-Threatening)
  Sender: FDA-Public Use
  Company Number: US-APPCO PHARMA LLC-2025512

PATIENT
  Sex: Female

DRUGS (8)
  1. NEOSTIGMINE [Suspect]
     Active Substance: NEOSTIGMINE
     Route: 065
  2. FENTANYL. [Concomitant]
     Active Substance: FENTANYL
     Route: 065
  3. ISOFLURANE. [Concomitant]
     Active Substance: ISOFLURANE
     Route: 065
  4. GLYCOPYRROLATE. [Suspect]
     Active Substance: GLYCOPYRROLATE
     Indication: NEUROMUSCULAR BLOCKADE REVERSAL
     Route: 015
  5. TERBUTALINE [Concomitant]
     Active Substance: TERBUTALINE
     Route: 065
  6. ETOMIDATE. [Concomitant]
     Active Substance: ETOMIDATE
     Route: 065
  7. VECURONIUM BROMIDE. [Concomitant]
     Active Substance: VECURONIUM BROMIDE
     Route: 065
  8. NITROGLYCERIN. [Concomitant]
     Active Substance: NITROGLYCERIN
     Route: 065

REACTIONS (3)
  - Foetal exposure during pregnancy [Recovered/Resolved]
  - Cardiac arrest neonatal [Recovered/Resolved with Sequelae]
  - Product use in unapproved indication [Unknown]
